FAERS Safety Report 7148585-9 (Version None)
Quarter: 2010Q4

REPORT INFORMATION
  Report Type: 
  Country: None (occurrence: None)
  Receive Date: 20101209
  Receipt Date: 20101201
  Transmission Date: 20110411
  Serious: Yes (Hospitalization)
  Sender: FDA-Public Use
  Company Number: JP-JNJFOC-20101006882

PATIENT
  Age: 58 Year
  Sex: Male
  Weight: 70 kg

DRUGS (16)
  1. REMICADE [Suspect]
     Indication: PSORIASIS
     Route: 042
  2. REMICADE [Suspect]
     Route: 042
  3. PREDONINE [Suspect]
     Indication: ILL-DEFINED DISORDER
     Route: 048
  4. MYSER [Concomitant]
     Indication: PSORIASIS
  5. LOCOIDON [Concomitant]
     Indication: PSORIASIS
  6. ANTEBATE [Concomitant]
     Indication: PSORIASIS
  7. RINDERON-V [Concomitant]
     Indication: PSORIASIS
  8. PARIET [Concomitant]
     Route: 048
  9. ACTONEL [Concomitant]
     Route: 048
  10. OXAROL [Concomitant]
     Indication: PSORIASIS
  11. ANTEBATE [Concomitant]
  12. AMLODIN [Concomitant]
     Route: 048
  13. BEZATOL [Concomitant]
     Route: 048
  14. STARSIS [Concomitant]
     Route: 048
  15. MELBIN [Concomitant]
     Route: 048
  16. CEFMETAZON [Concomitant]

REACTIONS (5)
  - BLOOD BETA-D-GLUCAN INCREASED [None]
  - CYTOMEGALOVIRUS INFECTION [None]
  - CYTOMEGALOVIRUS VIRAEMIA [None]
  - PLEURAL INFECTION BACTERIAL [None]
  - PNEUMONIA BACTERIAL [None]
